FAERS Safety Report 20037780 (Version 1)
Quarter: 2021Q4

REPORT INFORMATION
  Report Type: Spontaneous
  Country: US (occurrence: US)
  Receive Date: 20211105
  Receipt Date: 20211105
  Transmission Date: 20220303
  Serious: No
  Sender: FDA-Public Use
  Company Number: US-PFIZER INC-2021443881

PATIENT
  Age: 51 Year
  Sex: Female

DRUGS (5)
  1. EUCRISA [Suspect]
     Active Substance: CRISABOROLE
     Indication: Dermatitis
     Dosage: UNK, 2X/DAY
     Route: 061
  2. EUCRISA [Suspect]
     Active Substance: CRISABOROLE
     Indication: Dermatitis atopic
  3. EUCRISA [Suspect]
     Active Substance: CRISABOROLE
     Indication: Rash
  4. EUCRISA [Suspect]
     Active Substance: CRISABOROLE
     Indication: Skin burning sensation
  5. CLOBETASOL [Concomitant]
     Active Substance: CLOBETASOL
     Dosage: UNK

REACTIONS (3)
  - Therapeutic product effect incomplete [Unknown]
  - Rash [Unknown]
  - Condition aggravated [Not Recovered/Not Resolved]
